FAERS Safety Report 15769539 (Version 1)
Quarter: 2018Q4

REPORT INFORMATION
  Report Type: Spontaneous
  Country: CA (occurrence: CA)
  Receive Date: 20181228
  Receipt Date: 20181228
  Transmission Date: 20190205
  Serious: Yes (Other)
  Sender: FDA-Public Use
  Company Number: CA-TEVA-2018-CA-991828

PATIENT
  Sex: Female

DRUGS (7)
  1. LORATADINE. [Concomitant]
     Active Substance: LORATADINE
     Indication: CONJUNCTIVITIS
     Dosage: 1 DOSAGE FORMS DAILY;
     Route: 048
  2. SPIRIVA [Concomitant]
     Active Substance: TIOTROPIUM BROMIDE MONOHYDRATE
     Indication: ASTHMA
     Dosage: 2 DOSAGE FORMS DAILY;
     Route: 050
  3. MONTELUKAST SODIUM. [Suspect]
     Active Substance: MONTELUKAST SODIUM
     Indication: ASTHMA
     Dosage: 10 MILLIGRAM DAILY;
     Route: 048
  4. IBUPROFEN. [Concomitant]
     Active Substance: IBUPROFEN
     Indication: NERVE COMPRESSION
     Route: 048
  5. OMNARIS [Concomitant]
     Active Substance: CICLESONIDE
     Indication: RHINITIS ALLERGIC
     Dosage: 4 DOSAGE FORMS DAILY;
     Route: 045
  6. SYMBICORT [Concomitant]
     Active Substance: BUDESONIDE\FORMOTEROL FUMARATE DIHYDRATE
     Indication: ASTHMA
     Dosage: 2 DOSAGE FORMS DAILY;
     Route: 050
  7. TERBUTALINE SULFATE. [Concomitant]
     Active Substance: TERBUTALINE SULFATE
     Indication: ASTHMA
     Route: 050

REACTIONS (10)
  - Conjunctivitis [Unknown]
  - Dyspnoea [Unknown]
  - Blister [Unknown]
  - Nasal congestion [Unknown]
  - Chest discomfort [Unknown]
  - Parosmia [Unknown]
  - Pneumonia [Unknown]
  - Paranasal sinus discomfort [Unknown]
  - Sinusitis [Unknown]
  - Swelling face [Unknown]
